FAERS Safety Report 11805230 (Version 2)
Quarter: 2016Q2

REPORT INFORMATION
  Report Type: Other
  Country: DE (occurrence: DE)
  Receive Date: 20151206
  Receipt Date: 20160406
  Transmission Date: 20160815
  Serious: Yes (Congenital Anomaly)
  Sender: FDA-Public Use
  Company Number: DE-MYLANLABS-2015M1042185

PATIENT
  Sex: Female
  Weight: 3.52 kg

DRUGS (3)
  1. NORTRILEN [Concomitant]
     Active Substance: NORTRIPTYLINE
     Indication: DEPRESSION
     Dosage: 10 [MG/D ]
     Route: 064
  2. PAROXEDURA 30 MG FILMTABLETTEN [Suspect]
     Active Substance: PAROXETINE HYDROCHLORIDE
     Indication: ANXIETY DISORDER
     Dosage: 30 [MG/D ]
     Route: 064
     Dates: start: 20140821, end: 20140923
  3. FOLIO FORTE [Concomitant]
     Active Substance: FOLIC ACID\VITAMINS
     Indication: PROPHYLAXIS OF NEURAL TUBE DEFECT
     Dosage: 0.8 [MG/D ]
     Route: 064

REACTIONS (8)
  - Von Willebrand^s disease [Not Recovered/Not Resolved]
  - Foetal exposure during pregnancy [Unknown]
  - Atrial septal defect [Unknown]
  - Hypoplastic right heart syndrome [Unknown]
  - Transposition of the great vessels [Unknown]
  - Ventricular septal defect [Unknown]
  - Congenital tricuspid valve atresia [Unknown]
  - Congenital aortic anomaly [Recovered/Resolved with Sequelae]
